FAERS Safety Report 7329658-4 (Version None)
Quarter: 2011Q1

REPORT INFORMATION
  Report Type: 
  Country: None (occurrence: None)
  Receive Date: 20110303
  Receipt Date: 20110228
  Transmission Date: 20110831
  Serious: Yes (Hospitalization, Other)
  Sender: FDA-Public Use
  Company Number: GB-PFIZER INC-2010137282

PATIENT
  Age: 57 Year
  Sex: Female
  Weight: 64 kg

DRUGS (12)
  1. CHAMPIX [Suspect]
     Indication: SMOKING CESSATION THERAPY
     Dosage: 1 MG, 1X/DAY
     Route: 048
     Dates: start: 20091127, end: 20100108
  2. PROMETHAZINE HYDROCHLORIDE [Concomitant]
     Dosage: 50 MG, 1X/DAY
     Route: 048
     Dates: start: 20070821
  3. QUININE SULFATE [Concomitant]
     Dosage: 200 MG, 1X/DAY
     Route: 048
     Dates: start: 20090319
  4. FOLIC ACID [Concomitant]
     Dosage: 5 MG DAILY
     Dates: start: 20060609
  5. SERETIDE [Concomitant]
     Dosage: 2 DF, 2X/DAY
     Route: 055
     Dates: start: 20090210
  6. SIMVASTATIN [Concomitant]
     Dosage: 40 MG, 1X/DAY AT NIGHT
     Dates: start: 20060224
  7. PLAVIX [Concomitant]
     Dosage: 75 MG DAILY
     Route: 048
     Dates: start: 20060526
  8. CO-CODAMOL [Concomitant]
     Dosage: 1 OR 2 TABLETS EVERY 4 TO 6 HOURS
     Route: 048
     Dates: start: 20100121
  9. ADCAL-D3 [Concomitant]
     Dosage: 1 DF, 1X/DAY
     Route: 048
     Dates: start: 20070302
  10. LISINOPRIL [Concomitant]
     Dosage: 2.5 MG, UNK
     Route: 048
     Dates: start: 20050621
  11. ZOTON [Concomitant]
     Dosage: 30 MG DAILY
     Route: 048
     Dates: start: 20070705
  12. SALBUTAMOL [Concomitant]
     Dosage: 100UG TO 200UG AS DIRECTED
     Route: 055
     Dates: start: 20091230

REACTIONS (8)
  - AGORAPHOBIA [None]
  - ANXIETY [None]
  - CONFUSIONAL STATE [None]
  - HALLUCINATION [None]
  - NAUSEA [None]
  - INSOMNIA [None]
  - PARANOIA [None]
  - DRUG HYPERSENSITIVITY [None]
